FAERS Safety Report 21286879 (Version 1)
Quarter: 2022Q3

REPORT INFORMATION
  Report Type: Spontaneous
  Country: GR (occurrence: GR)
  Receive Date: 20220902
  Receipt Date: 20220902
  Transmission Date: 20221026
  Serious: Yes (Death, Hospitalization)
  Sender: FDA-Public Use
  Company Number: GR-GLAXOSMITHKLINE-GR2022EME125985

PATIENT

DRUGS (1)
  1. BLENREP [Suspect]
     Active Substance: BELANTAMAB MAFODOTIN-BLMF
     Indication: Plasma cell myeloma
     Dosage: UNK
     Dates: end: 20220826

REACTIONS (2)
  - Hospitalisation [Fatal]
  - Infection [Fatal]

NARRATIVE: CASE EVENT DATE: 20220819
